FAERS Safety Report 6969585-5 (Version None)
Quarter: 2010Q3

REPORT INFORMATION
  Report Type: 
  Country: None (occurrence: None)
  Receive Date: 20100903
  Receipt Date: 20100820
  Transmission Date: 20110219
  Serious: Yes (Hospitalization, Other)
  Sender: FDA-Public Use
  Company Number: 2008S1012498

PATIENT
  Age: 53 Year
  Sex: Female
  Weight: 84.369 kg

DRUGS (6)
  1. PHOSPHOSODA FLAVOR NOT SPECIFIED [Suspect]
     Indication: COLONOSCOPY
     Dosage: 90 ML; TOTAL; PO
     Route: 048
     Dates: start: 20060112, end: 20060112
  2. NAPROXEN [Concomitant]
  3. PRILOSEC [Concomitant]
  4. ESTRADIOL [Concomitant]
  5. ALBUTEROL [Concomitant]
  6. BECLOMETHASONE DIPROPIONATE [Concomitant]

REACTIONS (11)
  - ABDOMINAL PAIN UPPER [None]
  - DECREASED APPETITE [None]
  - DIALYSIS [None]
  - DIARRHOEA [None]
  - HYPOTENSION [None]
  - POLYURIA [None]
  - RENAL FAILURE ACUTE [None]
  - RENAL FAILURE CHRONIC [None]
  - RENAL INJURY [None]
  - RENAL TUBULAR NECROSIS [None]
  - THIRST [None]
